FAERS Safety Report 25987806 (Version 1)
Quarter: 2025Q4

REPORT INFORMATION
  Report Type: Spontaneous
  Country: GB (occurrence: GB)
  Receive Date: 20251103
  Receipt Date: 20251103
  Transmission Date: 20260117
  Serious: Yes (Other)
  Sender: ACCORD
  Company Number: None

PATIENT
  Age: 59 Year
  Sex: Male
  Weight: 91 kg

DRUGS (1)
  1. SERTRALINE [Suspect]
     Active Substance: SERTRALINE HYDROCHLORIDE
     Indication: Adverse drug reaction
     Dosage: 100 MG DAY
     Dates: start: 20250114

REACTIONS (2)
  - Medication error [Unknown]
  - Weight increased [Recovering/Resolving]

NARRATIVE: CASE EVENT DATE: 20250114
